FAERS Safety Report 8924795 (Version 2)
Quarter: 2013Q4

REPORT INFORMATION
  Report Type: Spontaneous
  Country: DK (occurrence: DK)
  Receive Date: 20121126
  Receipt Date: 20131202
  Transmission Date: 20140711
  Serious: Yes (Other)
  Sender: FDA-Public Use
  Company Number: DK-PFIZER INC-2012293194

PATIENT
  Age: 45 Year
  Sex: Male
  Weight: 85 kg

DRUGS (2)
  1. SOLU-MEDROL [Suspect]
     Indication: MULTIPLE SCLEROSIS
     Dosage: STRENGTH: 1 G
     Route: 042
     Dates: start: 20110615
  2. GILENYA [Concomitant]
     Indication: MULTIPLE SCLEROSIS

REACTIONS (1)
  - Chorioretinopathy [Not Recovered/Not Resolved]
